FAERS Safety Report 25350873 (Version 2)
Quarter: 2025Q2

REPORT INFORMATION
  Report Type: Spontaneous
  Country: BE (occurrence: BE)
  Receive Date: 20250523
  Receipt Date: 20250609
  Transmission Date: 20250717
  Serious: Yes (Life-Threatening, Hospitalization, Other)
  Sender: TAKEDA
  Company Number: BE-LMS-2025000612

PATIENT
  Age: 64 Year
  Sex: Female

DRUGS (9)
  1. PANTOPRAZOLE [Suspect]
     Active Substance: PANTOPRAZOLE
     Indication: Product used for unknown indication
     Dosage: 40 MILLIGRAM, QD
  2. COLCHICINE [Interacting]
     Active Substance: COLCHICINE
     Indication: Product used for unknown indication
     Dosage: 0.5 MILLIGRAM, QD
  3. METFORMIN HYDROCHLORIDE [Suspect]
     Active Substance: METFORMIN HYDROCHLORIDE
     Indication: Product used for unknown indication
     Dosage: 500 MILLIGRAM, BID
  4. EZETIMIBE\ROSUVASTATIN CALCIUM [Interacting]
     Active Substance: EZETIMIBE\ROSUVASTATIN CALCIUM
     Indication: Product used for unknown indication
     Dosage: 40/10 MILLIGRAM, QD
  5. PERINDOPRIL [Suspect]
     Active Substance: PERINDOPRIL
     Indication: Product used for unknown indication
     Dosage: 10 MILLIGRAM, QD
  6. AMLODIPINE [Concomitant]
     Active Substance: AMLODIPINE BESYLATE
     Indication: Product used for unknown indication
     Dosage: 5 MILLIGRAM, QD
  7. BISOPROLOL [Concomitant]
     Active Substance: BISOPROLOL
     Indication: Product used for unknown indication
     Dosage: 2.5 MILLIGRAM, QD
  8. TICAGRELOR [Concomitant]
     Active Substance: TICAGRELOR
     Indication: Product used for unknown indication
     Dosage: 90 MILLIGRAM, BID
  9. ASPIRIN [Concomitant]
     Active Substance: ASPIRIN
     Indication: Product used for unknown indication
     Dosage: 80 MILLIGRAM, QD

REACTIONS (9)
  - Acute kidney injury [Recovered/Resolved]
  - Decreased appetite [Recovered/Resolved]
  - Rhabdomyolysis [Recovered/Resolved]
  - Diarrhoea [Recovered/Resolved]
  - Metabolic acidosis [Recovered/Resolved]
  - Hyperkalaemia [Recovered/Resolved]
  - Hepatic function abnormal [Recovered/Resolved]
  - Blood thyroid stimulating hormone increased [Not Recovered/Not Resolved]
  - Labelled drug-drug interaction issue [Unknown]
